FAERS Safety Report 6132314-1 (Version None)
Quarter: 2009Q1

REPORT INFORMATION
  Report Type: 
  Country: None (occurrence: None)
  Receive Date: 20090325
  Receipt Date: 20090320
  Transmission Date: 20090719
  Serious: Yes (Hospitalization)
  Sender: FDA-Public Use
  Company Number: JP-SANOFI-SYNTHELABO-A01200901389

PATIENT
  Sex: Male

DRUGS (6)
  1. ELPLAT [Suspect]
     Indication: RECTAL CANCER
     Dosage: UNK
     Route: 041
     Dates: start: 20090109, end: 20090109
  2. OMEPRAL [Concomitant]
     Dosage: UNK
     Route: 065
     Dates: start: 20080523, end: 20080801
  3. AVASTIN [Suspect]
     Dosage: 5 MG/KG
     Route: 041
     Dates: start: 20090109, end: 20090109
  4. IRINOTECAN HYDROCHLORIDE [Suspect]
     Indication: RECTAL CANCER
     Dosage: UNK
     Route: 041
  5. CALCIUM LEVOFOLINATE [Suspect]
     Indication: RECTAL CANCER
     Dosage: UNK
     Route: 041
     Dates: start: 20090101, end: 20090101
  6. FLUOROURACIL [Suspect]
     Indication: RECTAL CANCER
     Dosage: UNK
     Route: 042
     Dates: start: 20090101, end: 20090101

REACTIONS (1)
  - DUODENAL ULCER PERFORATION [None]
